FAERS Safety Report 24165721 (Version 1)
Quarter: 2024Q3

REPORT INFORMATION
  Report Type: Spontaneous
  Country: US (occurrence: US)
  Receive Date: 20240802
  Receipt Date: 20240802
  Transmission Date: 20241016
  Serious: No
  Sender: ACCORD
  Company Number: US-Accord-364446

PATIENT
  Age: 47 Year
  Sex: Female

DRUGS (8)
  1. DOCETAXEL [Suspect]
     Active Substance: DOCETAXEL\DOCETAXEL ANHYDROUS
     Indication: Breast cancer
     Dosage: EVERY 3 WEEKS
     Route: 065
     Dates: start: 20210304, end: 20210304
  2. CYTOXAN [Suspect]
     Active Substance: CYCLOPHOSPHAMIDE
     Indication: Breast cancer
     Dates: start: 20210304, end: 20210304
  3. DOCETAXEL [Suspect]
     Active Substance: DOCETAXEL\DOCETAXEL ANHYDROUS
     Indication: Breast cancer
     Dosage: EVERY 3 WEEKS
     Route: 065
     Dates: start: 20210325, end: 20210325
  4. DOCETAXEL [Suspect]
     Active Substance: DOCETAXEL\DOCETAXEL ANHYDROUS
     Indication: Breast cancer
     Dosage: EVERY 3 WEEKS
     Route: 065
     Dates: start: 20210415, end: 20210415
  5. DOCETAXEL [Suspect]
     Active Substance: DOCETAXEL\DOCETAXEL ANHYDROUS
     Indication: Breast cancer
     Dosage: EVERY 3 WEEKS
     Route: 065
     Dates: start: 20210513, end: 20210513
  6. CYTOXAN [Suspect]
     Active Substance: CYCLOPHOSPHAMIDE
     Indication: Breast cancer
     Dates: start: 20210325, end: 20210325
  7. CYTOXAN [Suspect]
     Active Substance: CYCLOPHOSPHAMIDE
     Indication: Breast cancer
     Dates: start: 20210415, end: 20210415
  8. CYTOXAN [Suspect]
     Active Substance: CYCLOPHOSPHAMIDE
     Indication: Breast cancer
     Dates: start: 20210513, end: 20210513

REACTIONS (1)
  - Lacrimation increased [Not Recovered/Not Resolved]

NARRATIVE: CASE EVENT DATE: 20210304
